FAERS Safety Report 7680675-4 (Version None)
Quarter: 2011Q3

REPORT INFORMATION
  Report Type: 
  Country: None (occurrence: None)
  Receive Date: 20110812
  Receipt Date: 20110809
  Transmission Date: 20111222
  Serious: Yes (Other)
  Sender: FDA-Public Use
  Company Number: US-PFIZER INC-2011159264

PATIENT
  Sex: Male
  Weight: 84 kg

DRUGS (28)
  1. MECLOZINE HYDROCHLORIDE [Concomitant]
     Indication: HEAD INJURY
  2. GEMFIBROZIL [Concomitant]
     Dosage: 600 MG, 2X/DAY
  3. ACETYLSALICYLIC ACID [Concomitant]
     Dosage: 325 MG, 1X/DAY
  4. ULTRAM [Concomitant]
     Dosage: 50 MG, 2X/DAY
  5. CELEBREX [Concomitant]
     Dosage: 200 MG, 1X/DAY
  6. SPIRIVA [Concomitant]
     Dosage: UNK
  7. LYCOPENE [Concomitant]
     Dosage: UNK
  8. DIOVAN HCT [Concomitant]
     Dosage: 160/25 MG,UNK
     Dates: start: 20100801
  9. MULTI-VITAMINS [Concomitant]
     Dosage: UNK
     Dates: start: 20110309
  10. OXYGEN [Concomitant]
     Dosage: THREE LITERS 24/7
     Dates: start: 20050401
  11. MIDRIN [Concomitant]
     Dosage: 140/90MG AS NEEDED
  12. VOLTAREN [Concomitant]
     Dosage: GEL 2 GRAMS TO AFFECTED AREA
  13. ANTIVERT [Suspect]
     Indication: DIZZINESS
     Dosage: 25 MG, 3X/DAY
     Route: 048
  14. PRILOSEC [Concomitant]
     Dosage: 20 MG, UNK
  15. VICODIN ES [Concomitant]
     Dosage: 75-750MG AS NEEDED
  16. COMBIVENT [Concomitant]
     Dosage: INHALER AERO 2 PUFFS X 4
  17. ANTIVERT [Suspect]
     Indication: HEAD INJURY
  18. ULTRAM [Concomitant]
     Dosage: 60 MG, UNK
  19. LIVALO [Concomitant]
     Dosage: 4 MG, 1X/DAY
  20. CO-Q-10 [Concomitant]
     Dosage: 100 MG, 1X/DAY
     Dates: start: 20101020
  21. OSTEO BI-FLEX [Concomitant]
     Dosage: UNK
     Dates: start: 20100125
  22. IRON [Concomitant]
     Dosage: 50 MG, 1X/DAY
     Dates: start: 20100101
  23. ZANTAC [Concomitant]
     Dosage: 150 MG, AS NEEDED
  24. AMITRIPTYLINE [Concomitant]
     Dosage: 75 MG, AS NEEDED
  25. MECLOZINE HYDROCHLORIDE [Concomitant]
     Indication: DIZZINESS
     Dosage: 25 MG, 3X/DAY
     Route: 048
  26. LIPITOR [Concomitant]
     Dosage: 40 MG, 2X/DAY
     Dates: start: 20100801, end: 20110216
  27. PERCOCET [Concomitant]
     Dosage: 7.5 MG, AS NEEDED
  28. ALBUTEROL SULFATE AUTOHALER [Concomitant]
     Dosage: AEROSO 2 PUFFS EVERY 6 HOURS

REACTIONS (10)
  - CYST [None]
  - THINKING ABNORMAL [None]
  - HIP ARTHROPLASTY [None]
  - ANGIOPLASTY [None]
  - DRUG INEFFECTIVE [None]
  - PRODUCT SUBSTITUTION ISSUE [None]
  - PROSTATE CANCER [None]
  - CONFUSIONAL STATE [None]
  - MEMORY IMPAIRMENT [None]
  - SHOULDER OPERATION [None]
